FAERS Safety Report 7860865-8 (Version None)
Quarter: 2011Q4

REPORT INFORMATION
  Report Type: 
  Country: None (occurrence: None)
  Receive Date: 20111027
  Receipt Date: 20111024
  Transmission Date: 20120403
  Serious: Yes (Other)
  Sender: FDA-Public Use
  Company Number: US-SANOFI-AVENTIS-2011SA070245

PATIENT
  Age: 60 Year
  Sex: Female

DRUGS (2)
  1. LANTUS [Suspect]
     Dosage: DOSE:115 UNIT(S)
     Route: 058
     Dates: start: 20111021
  2. LANTUS [Suspect]
     Dosage: DOSE:10 UNIT(S)
     Route: 058
     Dates: start: 20110101

REACTIONS (4)
  - PAIN [None]
  - PNEUMONIA [None]
  - GLYCOSYLATED HAEMOGLOBIN INCREASED [None]
  - PLEURISY [None]
